FAERS Safety Report 6367346-1 (Version None)
Quarter: 2009Q3

REPORT INFORMATION
  Report Type: 
  Country: None (occurrence: None)
  Receive Date: 20090915
  Receipt Date: 20090901
  Transmission Date: 20100115
  Serious: No
  Sender: FDA-Public Use
  Company Number: 8051126

PATIENT
  Age: 85 Year
  Sex: Female
  Weight: 65.9 kg

DRUGS (2)
  1. KEPPRA [Suspect]
     Indication: CONVULSION
     Dosage: 750 MG /D PO
     Route: 048
     Dates: start: 20081201
  2. ARICEPT [Concomitant]

REACTIONS (2)
  - DISEASE PROGRESSION [None]
  - WRONG TECHNIQUE IN DRUG USAGE PROCESS [None]
